FAERS Safety Report 13566207 (Version 1)
Quarter: 2017Q2

REPORT INFORMATION
  Report Type: Spontaneous
  Country: US (occurrence: US)
  Receive Date: 20170519
  Receipt Date: 20170519
  Transmission Date: 20170830
  Serious: Yes (Death)
  Sender: FDA-Public Use
  Company Number: None

PATIENT
  Age: 89 Year
  Sex: Female

DRUGS (1)
  1. METHOTREXATE 25MG/ML HOSPIRA [Suspect]
     Active Substance: METHOTREXATE
     Indication: RHEUMATOID ARTHRITIS
     Route: 058
     Dates: start: 20161130, end: 20170501

REACTIONS (2)
  - Lymphoma [None]
  - Cardiac arrest [None]

NARRATIVE: CASE EVENT DATE: 20170501
